FAERS Safety Report 9796958 (Version 6)
Quarter: 2014Q2

REPORT INFORMATION
  Report Type: Spontaneous
  Country: US (occurrence: US)
  Receive Date: 20140105
  Receipt Date: 20140521
  Transmission Date: 20141212
  Serious: Yes (Life-Threatening, Hospitalization, Other)
  Sender: FDA-Public Use
  Company Number: US-MERCK-1401USA000340

PATIENT
  Sex: Female
  Weight: 135.15 kg

DRUGS (1)
  1. JANUVIA [Suspect]
     Indication: TYPE 2 DIABETES MELLITUS
     Dosage: 100 MG, QD
     Route: 048
     Dates: start: 20070615

REACTIONS (73)
  - Pancreatic neuroendocrine tumour metastatic [Not Recovered/Not Resolved]
  - Cerebrovascular accident [Recovered/Resolved]
  - Caesarean section [Unknown]
  - Surgery [Unknown]
  - Urinary tract infection [Unknown]
  - Oedema [Unknown]
  - Metastases to liver [Unknown]
  - Full blood count decreased [Unknown]
  - Surgery [Unknown]
  - Hypokalaemia [Unknown]
  - Dehydration [Unknown]
  - Hypotension [Unknown]
  - Urinary tract infection [Unknown]
  - Anaemia of chronic disease [Unknown]
  - Pancreatitis [Unknown]
  - Renal failure acute [Unknown]
  - Renal failure [Unknown]
  - Vision blurred [Recovered/Resolved]
  - Nephrolithiasis [Recovered/Resolved]
  - Urinary tract infection [Unknown]
  - Gingivitis [Recovered/Resolved]
  - Periodontal disease [Recovered/Resolved]
  - Gastrooesophageal reflux disease [Unknown]
  - Gout [Unknown]
  - Insomnia [Not Recovered/Not Resolved]
  - Depression [Unknown]
  - Anxiety [Unknown]
  - Osteoporosis [Unknown]
  - Hysterectomy [Unknown]
  - Knee operation [Unknown]
  - Carpal tunnel decompression [Unknown]
  - Hepatic cirrhosis [Unknown]
  - Hypokalaemia [Recovered/Resolved]
  - Pancreatic pseudocyst [Unknown]
  - Pancreatic cyst [Unknown]
  - Duodenal ulcer [Unknown]
  - Duodenitis [Not Recovered/Not Resolved]
  - Duodenitis [Unknown]
  - Ileus [Recovered/Resolved]
  - Platelet count decreased [Unknown]
  - Hepatic cyst [Unknown]
  - Non-alcoholic steatohepatitis [Unknown]
  - Fatigue [Unknown]
  - Dyspnoea exertional [Unknown]
  - Insomnia [Unknown]
  - Thrombocytopenia [Unknown]
  - Breast mass [Unknown]
  - Splenomegaly [Unknown]
  - Pancreatic cyst [Unknown]
  - Chronic hepatitis C [Not Recovered/Not Resolved]
  - Appendicectomy [Unknown]
  - Knee arthroplasty [Unknown]
  - Renal cyst [Unknown]
  - Explorative laparotomy [Unknown]
  - Portal hypertension [Unknown]
  - Conjunctival pallor [Unknown]
  - Oedema peripheral [Unknown]
  - Faeces discoloured [Unknown]
  - Paraesthesia [Unknown]
  - Paresis [Unknown]
  - Osteoarthritis [Unknown]
  - Neuropathy peripheral [Unknown]
  - Pituitary tumour [Unknown]
  - Hypothyroidism [Unknown]
  - Incisional hernia repair [Unknown]
  - Urge incontinence [Unknown]
  - Gastrinoma [Unknown]
  - Intervertebral disc degeneration [Unknown]
  - Gastroenteritis [Unknown]
  - Back pain [Not Recovered/Not Resolved]
  - Arthralgia [Unknown]
  - Myalgia [Unknown]
  - Glomerular filtration rate decreased [Unknown]
